FAERS Safety Report 20460490 (Version 2)
Quarter: 2022Q1

REPORT INFORMATION
  Report Type: Spontaneous
  Country: MY (occurrence: MY)
  Receive Date: 20220211
  Receipt Date: 20220224
  Transmission Date: 20220424
  Serious: Yes (Other)
  Sender: FDA-Public Use
  Company Number: None

PATIENT
  Age: 57 Year
  Sex: Male

DRUGS (3)
  1. FLUOXETINE [Suspect]
     Active Substance: FLUOXETINE HYDROCHLORIDE
     Indication: Depression
     Dosage: 20 MILLIGRAM, PER DAY
     Route: 048
     Dates: start: 20191127
  2. FLUOXETINE [Suspect]
     Active Substance: FLUOXETINE HYDROCHLORIDE
     Indication: Motor dysfunction
     Dosage: 20 MILLIGRAM, PER 2 DAY
     Route: 065
     Dates: end: 20200224
  3. PIRACETAM [Concomitant]
     Active Substance: PIRACETAM
     Indication: Aphasia
     Dosage: 2.4 GRAM, EVERY 12 HRS
     Route: 065
     Dates: start: 2019

REACTIONS (4)
  - Oedema peripheral [Recovered/Resolved]
  - Face oedema [Recovered/Resolved]
  - Oedema [Recovered/Resolved]
  - Off label use [Unknown]

NARRATIVE: CASE EVENT DATE: 20191129
